FAERS Safety Report 4376285-7 (Version None)
Quarter: 2004Q2

REPORT INFORMATION
  Report Type: 
  Country: None (occurrence: None)
  Receive Date: 20040608
  Receipt Date: 20031207
  Transmission Date: 20050107
  Serious: Yes (Other)
  Sender: FDA-Public Use
  Company Number: 200314582BCC

PATIENT
  Age: 52 Year
  Sex: Female
  Weight: 73.4827 kg

DRUGS (4)
  1. ALEVE [Suspect]
     Dosage: 220 MG, BID, ORAL; 220 MG, QD, ORAL
     Route: 048
     Dates: start: 20030912
  2. ALEVE [Suspect]
     Dosage: 220 MG, BID, ORAL; 220 MG, QD, ORAL
     Route: 048
     Dates: start: 20030913
  3. LIPITOR [Concomitant]
  4. VASERETIC [Concomitant]

REACTIONS (3)
  - HYPERSENSITIVITY [None]
  - OROPHARYNGEAL SWELLING [None]
  - RASH [None]
